FAERS Safety Report 5882563-2 (Version None)
Quarter: 2008Q3

REPORT INFORMATION
  Report Type: 
  Country: None (occurrence: None)
  Receive Date: 20080913
  Receipt Date: 20080826
  Transmission Date: 20090109
  Serious: No
  Sender: FDA-Public Use
  Company Number: US-ABBOTT-08P-163-0469488-00

PATIENT
  Sex: Female

DRUGS (1)
  1. HUMIRA [Suspect]
     Indication: CROHN'S DISEASE
     Route: 058
     Dates: start: 20080601, end: 20080801

REACTIONS (4)
  - CANDIDIASIS [None]
  - FUNGAL INFECTION [None]
  - LIP SWELLING [None]
  - PHARYNGEAL OEDEMA [None]
